FAERS Safety Report 13079711 (Version 2)
Quarter: 2017Q1

REPORT INFORMATION
  Report Type: Spontaneous
  Country: US (occurrence: US)
  Receive Date: 20170103
  Receipt Date: 20170123
  Transmission Date: 20170428
  Serious: Yes (Hospitalization)
  Sender: FDA-Public Use
  Company Number: US-UNITED THERAPEUTICS-UNT-2016-011416

PATIENT
  Age: 72 Year
  Sex: Male
  Weight: 126 kg

DRUGS (5)
  1. LETAIRIS [Suspect]
     Active Substance: AMBRISENTAN
     Indication: PRODUCT USED FOR UNKNOWN INDICATION
     Dosage: 10 MG, QD
     Route: 065
     Dates: start: 20090602
  2. LETAIRIS [Suspect]
     Active Substance: AMBRISENTAN
     Dosage: UNK
  3. ADCIRCA [Concomitant]
     Active Substance: TADALAFIL
     Indication: PRODUCT USED FOR UNKNOWN INDICATION
  4. TYVASO [Suspect]
     Active Substance: TREPROSTINIL
     Dosage: UNK
  5. TYVASO [Suspect]
     Active Substance: TREPROSTINIL
     Indication: PULMONARY HYPERTENSION
     Dosage: 18-54 MICROGRAMS, QID
     Dates: start: 20160705

REACTIONS (5)
  - Loss of consciousness [Recovered/Resolved]
  - Dyspnoea exertional [Not Recovered/Not Resolved]
  - Dizziness [Recovered/Resolved]
  - Hypotension [Not Recovered/Not Resolved]
  - Presyncope [Not Recovered/Not Resolved]

NARRATIVE: CASE EVENT DATE: 201607
